FAERS Safety Report 16740103 (Version 1)
Quarter: 2019Q3

REPORT INFORMATION
  Report Type: Spontaneous
  Country: DE (occurrence: DE)
  Receive Date: 20190826
  Receipt Date: 20190826
  Transmission Date: 20191005
  Serious: Yes (Hospitalization, Congenital Anomaly)
  Sender: FDA-Public Use
  Company Number: DE-PERRIGO-19DE009977

PATIENT
  Sex: Male

DRUGS (4)
  1. ETHACRIDINE [Concomitant]
     Active Substance: ETHACRIDINE
     Indication: FOETAL EXPOSURE DURING PREGNANCY
     Dosage: UNK (1ST TRIMESTER)
     Route: 064
  2. PROCAINE [Concomitant]
     Active Substance: PROCAINE
     Indication: FOETAL EXPOSURE DURING PREGNANCY
     Dosage: UNK (3RD TRIMESTER)
     Route: 064
  3. AMOXICILLIN. [Concomitant]
     Active Substance: AMOXICILLIN
     Indication: FOETAL EXPOSURE DURING PREGNANCY
     Dosage: UNK (3RD TRIMESTER)
     Route: 064
  4. ACETAMINOPHEN. [Suspect]
     Active Substance: ACETAMINOPHEN
     Indication: FOETAL EXPOSURE DURING PREGNANCY
     Dosage: 500 TO 1500 MG, QD
     Route: 064

REACTIONS (2)
  - Patent ductus arteriosus [Recovered/Resolved]
  - Foetal exposure during pregnancy [Recovered/Resolved]
